FAERS Safety Report 5842708-7 (Version None)
Quarter: 2008Q3

REPORT INFORMATION
  Report Type: 
  Country: None (occurrence: None)
  Receive Date: 20080808
  Receipt Date: 20080729
  Transmission Date: 20090109
  Serious: Yes (Other)
  Sender: FDA-Public Use
  Company Number: 237172J08USA

PATIENT
  Age: 42 Year
  Sex: Female
  Weight: 68.0396 kg

DRUGS (2)
  1. REBIF [Suspect]
     Indication: MULTIPLE SCLEROSIS
     Dosage: 44 MCG, 3 IN 1 WEEKS, SUBCUTANEOUS
     Route: 058
     Dates: start: 20060222, end: 20070117
  2. DARVOCET [Concomitant]

REACTIONS (4)
  - GAIT DISTURBANCE [None]
  - INJECTION SITE REACTION [None]
  - INJECTION SITE SCAR [None]
  - PERIPHERAL VASCULAR DISORDER [None]
